FAERS Safety Report 18239105 (Version 1)
Quarter: 2020Q3

REPORT INFORMATION
  Report Type: Spontaneous
  Country: IR (occurrence: IR)
  Receive Date: 20200907
  Receipt Date: 20200907
  Transmission Date: 20201103
  Serious: Yes (Death, Other)
  Sender: FDA-Public Use
  Company Number: NVSC2020IR242735

PATIENT
  Age: 63 Year
  Sex: Female

DRUGS (10)
  1. SANDIMMUN [Interacting]
     Active Substance: CYCLOSPORINE
     Dosage: 50 MG, BID
     Route: 065
  2. CELLCEPT [Suspect]
     Active Substance: MYCOPHENOLATE MOFETIL\MYCOPHENOLATE MOFETIL HYDROCHLORIDE
     Indication: IMMUNOSUPPRESSION
     Dosage: 1.3 MG/L
     Route: 065
  3. KALETRA [Suspect]
     Active Substance: LOPINAVIR\RITONAVIR
     Indication: SUSPECTED COVID-19
     Dosage: 400/100
     Route: 048
  4. SANDIMMUN [Suspect]
     Active Substance: CYCLOSPORINE
     Indication: IMMUNOSUPPRESSION
     Dosage: 75 MG, BID
     Route: 065
  5. HCQ [Concomitant]
     Active Substance: HYDROXYCHLOROQUINE SULFATE
     Indication: SUSPECTED COVID-19
     Dosage: 400 MG, SINGLE DOSE
     Route: 048
  6. HIDROCORTISON [Concomitant]
     Active Substance: HYDROCORTISONE
     Indication: SUSPECTED COVID-19
     Dosage: 100 MG, EVERY 8 HOURS
     Route: 065
  7. CELLCEPT [Suspect]
     Active Substance: MYCOPHENOLATE MOFETIL\MYCOPHENOLATE MOFETIL HYDROCHLORIDE
     Dosage: 500 MG, BID
     Route: 065
  8. CEFEPIME [Concomitant]
     Active Substance: CEFEPIME HYDROCHLORIDE
     Indication: SUSPECTED COVID-19
     Dosage: 500 MG, BID
     Route: 042
  9. OSELTAMIVIR [Suspect]
     Active Substance: OSELTAMIVIR
     Indication: SUSPECTED COVID-19
     Dosage: 75 MG, QD
     Route: 048
  10. VANCOMYCIN [Concomitant]
     Active Substance: VANCOMYCIN
     Indication: SUSPECTED COVID-19
     Route: 065

REACTIONS (3)
  - Drug interaction [Unknown]
  - Renal failure [Fatal]
  - Nephropathy toxic [Not Recovered/Not Resolved]
